FAERS Safety Report 21311059 (Version 3)
Quarter: 2022Q4

REPORT INFORMATION
  Report Type: Spontaneous
  Country: TW (occurrence: TW)
  Receive Date: 20220909
  Receipt Date: 20221209
  Transmission Date: 20230113
  Serious: Yes (Other)
  Sender: FDA-Public Use
  Company Number: TW-BRISTOL-MYERS SQUIBB COMPANY-2022-103039

PATIENT
  Sex: Male

DRUGS (3)
  1. OPDIVO [Suspect]
     Active Substance: NIVOLUMAB
     Indication: Squamous cell carcinoma of lung
     Dosage: ONLY RECEIVED ONE CYCLE
     Route: 042
     Dates: start: 20220826
  2. OPDIVO [Suspect]
     Active Substance: NIVOLUMAB
     Dosage: 360 MG IVF
     Route: 042
     Dates: start: 20221003
  3. YERVOY [Suspect]
     Active Substance: IPILIMUMAB
     Indication: Squamous cell carcinoma of lung
     Dosage: ONLY RECEIVED ONE CYCLE
     Route: 042

REACTIONS (1)
  - Herpes zoster [Recovered/Resolved]

NARRATIVE: CASE EVENT DATE: 20220902
